FAERS Safety Report 6892488-1 (Version None)
Quarter: 2010Q3

REPORT INFORMATION
  Report Type: 
  Country: None (occurrence: None)
  Receive Date: 20100731
  Receipt Date: 20080923
  Transmission Date: 20110219
  Serious: No
  Sender: FDA-Public Use
  Company Number: US-PFIZER INC-2007008172

PATIENT
  Sex: Male
  Weight: 67.13 kg

DRUGS (8)
  1. CAVERJECT [Suspect]
     Indication: ERECTILE DYSFUNCTION
     Dates: start: 20060101
  2. FLECAINIDE ACETATE [Concomitant]
  3. LISINOPRIL [Concomitant]
  4. HYDROCHLOROTHIAZIDE [Concomitant]
  5. DILTIAZEM [Concomitant]
  6. ACETYLSALICYLIC ACID SRT [Concomitant]
  7. WARFARIN SODIUM [Concomitant]
  8. BUDESONIDE [Concomitant]
     Route: 055

REACTIONS (1)
  - DRUG INEFFECTIVE [None]
